FAERS Safety Report 14373040 (Version 2)
Quarter: 2018Q1

REPORT INFORMATION
  Report Type: Report from Study
  Country: AR (occurrence: AR)
  Receive Date: 20180110
  Receipt Date: 20180115
  Transmission Date: 20180509
  Serious: Yes (Death, Hospitalization)
  Sender: FDA-Public Use
  Company Number: PHHY2018AR002381

PATIENT
  Age: 82 Year
  Sex: Female

DRUGS (1)
  1. ENTRESTO [Suspect]
     Active Substance: SACUBITRIL\VALSARTAN
     Indication: CARDIAC FAILURE
     Dosage: UNK
     Route: 065

REACTIONS (6)
  - Pneumonia aspiration [Fatal]
  - Chills [Unknown]
  - Vomiting [Unknown]
  - Malaise [Unknown]
  - Cardiac disorder [Unknown]
  - Hypoxia [Unknown]

NARRATIVE: CASE EVENT DATE: 20170811
